FAERS Safety Report 8541706-2 (Version None)
Quarter: 2012Q3

REPORT INFORMATION
  Report Type: 
  Country: None (occurrence: None)
  Receive Date: 20120726
  Receipt Date: 20120725
  Transmission Date: 20120928
  Serious: Yes (Death, Life-Threatening, Hospitalization)
  Sender: FDA-Public Use
  Company Number: PHHO2011AR021780

PATIENT
  Sex: Female
  Weight: 58 kg

DRUGS (4)
  1. MYFORTIC [Suspect]
     Dosage: 720 MG, BID
     Route: 048
     Dates: start: 20111216, end: 20120124
  2. NEORAL [Suspect]
     Indication: RENAL TRANSPLANT
     Dosage: UNK
     Dates: start: 20120126, end: 20120128
  3. PROGRAF [Suspect]
     Dosage: 10 MG, UNK
     Route: 048
  4. PROGRAF [Suspect]
     Indication: RENAL TRANSPLANT
     Dosage: 4 MG, BID
     Route: 048
     Dates: start: 20111216, end: 20120125

REACTIONS (7)
  - ISCHAEMIC STROKE [None]
  - BACTERAEMIA [None]
  - URINARY TRACT INFECTION [None]
  - SEPTIC SHOCK [None]
  - RENAL IMPAIRMENT [None]
  - CARDIAC ARREST [None]
  - DEHYDRATION [None]
